FAERS Safety Report 8924434 (Version 1)
Quarter: 2012Q4

REPORT INFORMATION
  Report Type: Spontaneous
  Country: US (occurrence: None)
  Receive Date: 20121121
  Receipt Date: 20121121
  Transmission Date: 20130627
  Serious: Yes (Hospitalization)
  Sender: FDA-Public Use
  Company Number: None

PATIENT
  Age: 81 Year
  Sex: Male
  Weight: 51.8 kg

DRUGS (1)
  1. LOSARTAN [Suspect]
     Dosage: 25 MG EVERY DAY PO
     Route: 048
     Dates: start: 20060824, end: 20121114

REACTIONS (4)
  - Swollen tongue [None]
  - Dysphagia [None]
  - Drug hypersensitivity [None]
  - Angioedema [None]
